FAERS Safety Report 13437472 (Version 1)
Quarter: 2017Q2

REPORT INFORMATION
  Report Type: Spontaneous
  Country: US (occurrence: US)
  Receive Date: 20170413
  Receipt Date: 20170413
  Transmission Date: 20170830
  Serious: No
  Sender: FDA-Public Use
  Company Number: US-SA-2016SA074310

PATIENT
  Age: 60 Year
  Sex: Female
  Weight: 200 kg

DRUGS (2)
  1. ALLEGRA-D 24 HOUR [Suspect]
     Active Substance: FEXOFENADINE HYDROCHLORIDE\PSEUDOEPHEDRINE HYDROCHLORIDE
     Indication: MULTIPLE ALLERGIES
     Dosage: FEXOFENADINE HCL 180MG AND PSEUDOEPHEDRINE HCL 240. PRODUCT START DATE: 2 OR 3 YEARS.
     Route: 048
  2. ALLEGRA-D 24 HOUR [Suspect]
     Active Substance: FEXOFENADINE HYDROCHLORIDE\PSEUDOEPHEDRINE HYDROCHLORIDE
     Indication: MULTIPLE ALLERGIES
     Dosage: FEXOFENADINE HCL 180MG AND PSEUDOEPHEDRINE HCL 240. PRODUCT START DATE: 2 OR 3 YEARS.
     Route: 048

REACTIONS (4)
  - Tremor [Not Recovered/Not Resolved]
  - Cough [Unknown]
  - Headache [Not Recovered/Not Resolved]
  - Middle insomnia [Not Recovered/Not Resolved]
